FAERS Safety Report 17763989 (Version 3)
Quarter: 2020Q3

REPORT INFORMATION
  Report Type: Spontaneous
  Country: CA (occurrence: CA)
  Receive Date: 20200510
  Receipt Date: 20200728
  Transmission Date: 20201102
  Serious: Yes (Other)
  Sender: FDA-Public Use
  Company Number: CA-CELLTRION INC.-2019CA022294

PATIENT

DRUGS (17)
  1. SYNTHROID [Concomitant]
     Active Substance: LEVOTHYROXINE SODIUM
     Dosage: 0.175 MG, 1X/DAY
     Route: 048
  2. INFLECTRA [Suspect]
     Active Substance: INFLIXIMAB-DYYB
     Dosage: 700 MG, 0, 2, 6 , THEN EVERY 8 WEEKS
     Route: 042
     Dates: start: 20190527
  3. INFLECTRA [Suspect]
     Active Substance: INFLIXIMAB-DYYB
     Dosage: 800 MG EVERY 7 WEEKS
     Route: 042
     Dates: start: 20200619
  4. VITAMIN B12 [Concomitant]
     Active Substance: CYANOCOBALAMIN
     Dosage: UNK
     Route: 042
     Dates: start: 20190322
  5. INFLECTRA [Suspect]
     Active Substance: INFLIXIMAB-DYYB
     Indication: COLITIS ULCERATIVE
     Dosage: 700 MG, 0, 2, 6 , THEN EVERY 8 WEEKS
     Route: 042
     Dates: start: 20190527
  6. INFLECTRA [Suspect]
     Active Substance: INFLIXIMAB-DYYB
     Dosage: 10 MG/KG OR 1400MG, 0, 2, 6 , THEN EVERY 8 WEEKS
     Route: 042
     Dates: start: 20190610
  7. INFLECTRA [Suspect]
     Active Substance: INFLIXIMAB-DYYB
     Dosage: 10 MG/KG OR 1400MG Q 2, 6 WEEKS, THEN EVERY 8 WEEKS
     Route: 042
     Dates: start: 20190708
  8. INFLECTRA [Suspect]
     Active Substance: INFLIXIMAB-DYYB
     Dosage: 1000 MG, Q 2, 6 WEEKS, THEN EVERY 6 WEEKS
     Route: 042
     Dates: start: 20191206
  9. INFLECTRA [Suspect]
     Active Substance: INFLIXIMAB-DYYB
     Dosage: 800 MG EVERY 7 WEEKS
     Route: 042
     Dates: start: 20200313
  10. INFLECTRA [Suspect]
     Active Substance: INFLIXIMAB-DYYB
     Dosage: 800 MG EVERY 7 WEEKS
     Route: 042
     Dates: start: 20200501
  11. INFLECTRA [Suspect]
     Active Substance: INFLIXIMAB-DYYB
     Dosage: 10 MG/KG OR 1400MG, 0, 2, 6 , THEN EVERY 8 WEEKS
     Route: 042
     Dates: start: 20190610
  12. TECTA [Concomitant]
     Active Substance: PANTOPRAZOLE MAGNESIUM
     Dosage: 40 MG, WEEKLY (WD)
     Route: 048
  13. CIPRALEX [Concomitant]
     Active Substance: ESCITALOPRAM OXALATE
     Dosage: 10 MG, 1X/DAY
     Route: 048
  14. ELTROXIN [Concomitant]
     Active Substance: LEVOTHYROXINE
     Dosage: 0.2 MG, 1X/DAY
     Route: 048
  15. INFLECTRA [Suspect]
     Active Substance: INFLIXIMAB-DYYB
     Dosage: 800 MG EVERY 7 WEEKS
     Route: 042
     Dates: start: 20200122
  16. PREDNISONE. [Concomitant]
     Active Substance: PREDNISONE
     Dosage: 40 MG, FOR 2 WEEKS THEN TAPER ONE TABLET WEEKLY
     Route: 048
     Dates: start: 201901, end: 201901
  17. PREDNISONE. [Concomitant]
     Active Substance: PREDNISONE
     Dosage: 40 MG, FOR 2 WEEKS THEN TAPER ONE TABLET WEEKLY
     Route: 065
     Dates: start: 201901

REACTIONS (16)
  - Therapeutic product effect incomplete [Unknown]
  - Irritable bowel syndrome [Unknown]
  - Impaired work ability [Unknown]
  - Depression [Unknown]
  - Myalgia [Unknown]
  - Anxiety [Unknown]
  - Therapeutic product effect delayed [Unknown]
  - Flank pain [Unknown]
  - Off label use [Unknown]
  - Malaise [Unknown]
  - Nausea [Unknown]
  - Weight decreased [Unknown]
  - Diarrhoea [Recovering/Resolving]
  - Fatigue [Unknown]
  - Haemorrhoidal haemorrhage [Unknown]
  - Arthralgia [Recovering/Resolving]

NARRATIVE: CASE EVENT DATE: 2019
